FAERS Safety Report 7464586-5 (Version None)
Quarter: 2011Q1

REPORT INFORMATION
  Report Type: 
  Country: None (occurrence: None)
  Receive Date: 20110302
  Receipt Date: 20100720
  Transmission Date: 20110831
  Serious: Yes (Other)
  Sender: FDA-Public Use
  Company Number: 163-21880-10072114

PATIENT
  Age: 45 Year
  Sex: Male
  Weight: 140.6151 kg

DRUGS (6)
  1. ACYCLOVIR [Concomitant]
  2. REVLIMID [Suspect]
     Indication: MYELODYSPLASTIC SYNDROME
     Dosage: 15 MG, 1 IN 1 D, PO, 5 MG, 1 IN 1 D, PO
     Route: 048
     Dates: start: 20100701
  3. REVLIMID [Suspect]
     Indication: MYELODYSPLASTIC SYNDROME
     Dosage: 15 MG, 1 IN 1 D, PO, 5 MG, 1 IN 1 D, PO
     Route: 048
     Dates: start: 20070801
  4. XALATAN [Concomitant]
  5. LISINOPRIL [Concomitant]
  6. METFORMIN (METFORMIN) [Concomitant]

REACTIONS (1)
  - ANAL FISSURE [None]
